FAERS Safety Report 9297836 (Version 1)
Quarter: 2013Q2

REPORT INFORMATION
  Report Type: Spontaneous
  Country: US (occurrence: US)
  Receive Date: 20130520
  Receipt Date: 20130520
  Transmission Date: 20140414
  Serious: Yes (Hospitalization)
  Sender: FDA-Public Use
  Company Number: US-TEVA-405494USA

PATIENT
  Sex: Female
  Weight: 72.64 kg

DRUGS (15)
  1. ACTIQ [Suspect]
     Indication: BACK PAIN
     Route: 002
     Dates: start: 2007, end: 2010
  2. FENTORA [Suspect]
     Indication: BACK PAIN
     Route: 002
     Dates: start: 2007, end: 2010
  3. DILAUDID [Concomitant]
     Dosage: 8 MILLIGRAM DAILY; EVERY 4 HOURS AS NEEDED
     Route: 048
  4. MORPHINE [Concomitant]
     Dosage: EVERY 4 HOURS AS NEEDED
     Route: 048
  5. AMBIEN [Concomitant]
     Indication: INSOMNIA
     Dosage: 10 MILLIGRAM DAILY; EVERY NIGHT
     Route: 048
  6. PROZAC [Concomitant]
     Indication: DEPRESSION
     Dosage: 40 MILLIGRAM DAILY;
     Route: 048
  7. RITALIN [Concomitant]
     Dosage: 10 MILLIGRAM DAILY;
     Route: 048
  8. DIAZEPAM [Concomitant]
     Indication: BLADDER SPASM
     Route: 048
  9. VENTOLIN [Concomitant]
     Indication: LUNG DISORDER
  10. ACYCLOVIR [Concomitant]
     Indication: HERPES ZOSTER
     Route: 048
  11. NEXIUM [Concomitant]
     Indication: GASTROOESOPHAGEAL REFLUX DISEASE
     Dosage: 40 MILLIGRAM DAILY;
     Route: 048
  12. CARAFATE [Concomitant]
     Indication: GASTRIC DISORDER
  13. FLOVENT [Concomitant]
     Indication: LUNG DISORDER
  14. FLUTICASONE PROPIONATE [Concomitant]
     Indication: SINUS DISORDER
     Route: 045
  15. MORPHINE PUMP [Concomitant]
     Indication: PAIN

REACTIONS (6)
  - Respiratory disorder [Unknown]
  - Tooth erosion [Not Recovered/Not Resolved]
  - Teeth brittle [Not Recovered/Not Resolved]
  - Dental caries [Not Recovered/Not Resolved]
  - Off label use [Unknown]
  - Drug prescribing error [Unknown]
